FAERS Safety Report 22013186 (Version 2)
Quarter: 2023Q1

REPORT INFORMATION
  Report Type: Report from Study
  Country: AE (occurrence: AE)
  Receive Date: 20230220
  Receipt Date: 20230316
  Transmission Date: 20230417
  Serious: Yes (Hospitalization)
  Sender: FDA-Public Use
  Company Number: AE-ALLERGAN-2303985US

PATIENT
  Sex: Male

DRUGS (1)
  1. BOTULINUM TOXIN TYPE A [Suspect]
     Active Substance: BOTULINUM TOXIN TYPE A
     Indication: Muscle spasms
     Dosage: UNK, SINGLE
     Dates: start: 20221109, end: 20221109

REACTIONS (3)
  - Oxygen saturation decreased [Unknown]
  - Increased bronchial secretion [Unknown]
  - Respiratory distress [Unknown]

NARRATIVE: CASE EVENT DATE: 20230201
